FAERS Safety Report 7208148-3 (Version None)
Quarter: 2010Q4

REPORT INFORMATION
  Report Type: 
  Country: None (occurrence: None)
  Receive Date: 20101222
  Receipt Date: 20101208
  Transmission Date: 20110411
  Serious: Yes (Life-Threatening, Other)
  Sender: FDA-Public Use
  Company Number: 2010P1003161

PATIENT

DRUGS (3)
  1. AMPHETAMINE SALTS TABLETS 5MG (NO PREF. NAME) [Suspect]
     Indication: ATTENTION DEFICIT/HYPERACTIVITY DISORDER
     Dosage: 5 MG;BID;PO
     Route: 048
     Dates: start: 20100926, end: 20100927
  2. CON MEDS [Concomitant]
  3. PREV MEDS [Concomitant]

REACTIONS (13)
  - AGITATION [None]
  - ANHEDONIA [None]
  - ANXIETY [None]
  - DECREASED INTEREST [None]
  - DEPERSONALISATION [None]
  - DEREALISATION [None]
  - DYSPHORIA [None]
  - FEAR [None]
  - FEELING ABNORMAL [None]
  - LIBIDO INCREASED [None]
  - MAJOR DEPRESSION [None]
  - PANIC REACTION [None]
  - SUICIDAL IDEATION [None]
